FAERS Safety Report 9471245 (Version 1)
Quarter: 2013Q3

REPORT INFORMATION
  Report Type: Spontaneous
  Country: SE (occurrence: SE)
  Receive Date: 20130822
  Receipt Date: 20130822
  Transmission Date: 20140515
  Serious: Yes (Hospitalization)
  Sender: FDA-Public Use
  Company Number: SE-BRISTOL-MYERS SQUIBB COMPANY-19201995

PATIENT
  Age: 33 Year
  Sex: Female

DRUGS (3)
  1. ABILIFY TABS [Suspect]
     Dosage: APPROX 450 MG
     Route: 048
  2. LERGIGAN [Suspect]
     Dosage: TOTAL OF 127 TABS
     Route: 048
  3. IMOVANE [Suspect]
     Dosage: TOTAL OF 127 TABS
     Route: 048

REACTIONS (6)
  - Overdose [Not Recovered/Not Resolved]
  - Loss of consciousness [Not Recovered/Not Resolved]
  - Visual impairment [Not Recovered/Not Resolved]
  - Tachycardia [Not Recovered/Not Resolved]
  - Chest pain [Not Recovered/Not Resolved]
  - Vomiting [Not Recovered/Not Resolved]
